FAERS Safety Report 19271157 (Version 1)
Quarter: 2021Q2

REPORT INFORMATION
  Report Type: Spontaneous
  Country: US (occurrence: US)
  Receive Date: 20210518
  Receipt Date: 20210518
  Transmission Date: 20210717
  Serious: Yes (Other)
  Sender: FDA-Public Use
  Company Number: US-GLAXOSMITHKLINE-USCH2021027812

PATIENT
  Age: 60 Year
  Sex: Male

DRUGS (1)
  1. SENSODYNE PRONAMEL [Suspect]
     Active Substance: POTASSIUM NITRATE\SODIUM FLUORIDE
     Indication: DENTAL CLEANING
     Dosage: UNK

REACTIONS (2)
  - Burn oral cavity [Recovered/Resolved]
  - Product use issue [Unknown]
